FAERS Safety Report 13065522 (Version 1)
Quarter: 2016Q4

REPORT INFORMATION
  Report Type: Spontaneous
  Country: FR (occurrence: FR)
  Receive Date: 20161227
  Receipt Date: 20161227
  Transmission Date: 20170207
  Serious: Yes (Life-Threatening, Hospitalization)
  Sender: FDA-Public Use
  Company Number: FR-PFIZER INC-2016593148

PATIENT
  Age: 90 Year
  Sex: Female

DRUGS (12)
  1. DONORMYL /00334102/ [Suspect]
     Active Substance: DOXYLAMINE SUCCINATE
     Indication: POISONING DELIBERATE
     Dosage: 15 MG, SINGLE
     Route: 048
     Dates: start: 20160305, end: 20160305
  2. EUTHYRAL [Concomitant]
     Active Substance: LEVOTHYROXINE SODIUM\LIOTHYRONINE SODIUM
     Dosage: 0.5 DF, DAILY
  3. MIANSERIN HYDROCHLORIDE [Suspect]
     Active Substance: MIANSERIN HYDROCHLORIDE
     Indication: POISONING DELIBERATE
     Dosage: 300 MG, SINGLE
     Route: 048
     Dates: start: 20160305, end: 20160305
  4. EFFEXOR LP [Suspect]
     Active Substance: VENLAFAXINE HYDROCHLORIDE
     Indication: TOXICITY TO VARIOUS AGENTS
     Dosage: 375 MG, SINGLE
     Route: 048
     Dates: start: 20160305, end: 20160305
  5. KARDEGIC [Concomitant]
     Active Substance: ASPIRIN LYSINE
     Dosage: 75 MG, UNK
  6. INEXIUM /01479302/ [Concomitant]
     Active Substance: ESOMEPRAZOLE MAGNESIUM
     Dosage: 20 MG, UNK
  7. DOXYLAMINE SUCCINATE. [Concomitant]
     Active Substance: DOXYLAMINE SUCCINATE
     Dosage: 1 DF, UNK
  8. SEROPLEX [Concomitant]
     Active Substance: ESCITALOPRAM OXALATE
     Dosage: 75 MG, DAILY
  9. LERCAN [Concomitant]
     Active Substance: LERCANIDIPINE
     Dosage: 20 MG, UNK
  10. KENZEN [Concomitant]
     Active Substance: CANDESARTAN
     Dosage: 16 MG, UNK
  11. RIVOTRIL [Suspect]
     Active Substance: CLONAZEPAM
     Indication: TOXICITY TO VARIOUS AGENTS
     Dosage: 50 MG, SINGLE (ONE VIAL OR 500 DROPS)
     Route: 048
     Dates: start: 20160305, end: 20160305
  12. TAHOR [Concomitant]
     Active Substance: ATORVASTATIN CALCIUM
     Dosage: 10 MG, UNK

REACTIONS (3)
  - Altered state of consciousness [Recovered/Resolved]
  - Pneumonia aspiration [Recovered/Resolved]
  - Coma [Recovered/Resolved]

NARRATIVE: CASE EVENT DATE: 20160305
